FAERS Safety Report 6941101-3 (Version None)
Quarter: 2010Q3

REPORT INFORMATION
  Report Type: 
  Country: None (occurrence: None)
  Receive Date: 20100825
  Receipt Date: 20100813
  Transmission Date: 20110219
  Serious: Yes (Hospitalization)
  Sender: FDA-Public Use
  Company Number: GB-PFIZER INC-2010040770

PATIENT
  Age: 75 Year
  Sex: Female
  Weight: 62.4 kg

DRUGS (16)
  1. BLINDED *NO SUBJECT DRUG [Suspect]
     Indication: PULMONARY HYPERTENSION
     Dosage: UNK MG, 3X/DAY
     Route: 048
     Dates: start: 20091209, end: 20100308
  2. BLINDED *PLACEBO [Suspect]
     Indication: PULMONARY HYPERTENSION
     Dosage: UNK MG, 3X/DAY
     Route: 048
     Dates: start: 20091209, end: 20100308
  3. SILDENAFIL CITRATE [Suspect]
     Indication: PULMONARY HYPERTENSION
     Dosage: UNK MG, 3X/DAY
     Route: 048
     Dates: start: 20091209, end: 20100308
  4. SILDENAFIL CITRATE [Suspect]
     Indication: PULMONARY HYPERTENSION
     Dosage: 20 MG, 3X/DAY
     Dates: start: 20100308
  5. PREDNISOLONE [Concomitant]
     Dosage: 4 MG, UNK
     Route: 048
     Dates: start: 20080312
  6. BISOPROLOL [Concomitant]
     Dosage: 2.5 MG, UNK
     Route: 048
     Dates: start: 20050721
  7. OMEPRAZOLE [Concomitant]
     Dosage: 20 MG, UNK
     Route: 048
     Dates: start: 20080312
  8. RISEDRONATE SODIUM [Concomitant]
     Dosage: 2.5 MG, UNK
     Route: 048
     Dates: start: 20081110
  9. ACETYLSALICYLIC ACID [Concomitant]
     Dosage: 75 MG, UNK
     Route: 048
     Dates: start: 20041110
  10. RAMIPRIL [Concomitant]
     Dosage: 5 MG, UNK
     Route: 048
     Dates: start: 20050915
  11. FLECAINIDE [Concomitant]
     Dosage: 50 MG, UNK
     Route: 048
     Dates: start: 20091028
  12. SIMVASTATIN [Concomitant]
     Dosage: 40 MG, UNK
     Route: 048
     Dates: start: 20051107
  13. DEXAMETHASONE [Concomitant]
     Dosage: UNK, RIGHT EYE ONLY
     Route: 047
  14. OFLOXACIN [Concomitant]
     Dosage: UNK, RIGHT EYE ONLY
     Route: 047
  15. LIQUIFILM TEARS [Concomitant]
     Dosage: UNK, LEFT EYE ONLY
     Route: 047
  16. ILUBE [Concomitant]
     Dosage: UNK, LEFT EYE ONLY
     Route: 047

REACTIONS (1)
  - GASTROOESOPHAGEAL REFLUX DISEASE [None]
